FAERS Safety Report 8796771 (Version 2)
Quarter: 2014Q2

REPORT INFORMATION
  Report Type: Report from Study
  Country: US (occurrence: US)
  Receive Date: 20120917
  Receipt Date: 20140103
  Transmission Date: 20141212
  Serious: Yes (Death)
  Sender: FDA-Public Use
  Company Number: US-ROCHE-1127045

PATIENT
  Sex: Male
  Weight: 70 kg

DRUGS (9)
  1. AVASTIN [Suspect]
     Indication: MALIGNANT NEOPLASM OF RENAL PELVIS
     Dosage: TOTAL DOSE ADMINISTERED: 1400 MG
     Route: 065
  2. AVASTIN [Suspect]
     Indication: BONE CANCER
  3. AVASTIN [Suspect]
     Indication: BONE CANCER
  4. AVASTIN [Suspect]
     Indication: MALIGNANT NEOPLASM OF RENAL PELVIS
  5. AVASTIN [Suspect]
     Indication: MALIGNANT NEOPLASM OF RENAL PELVIS
  6. INTRON-A [Concomitant]
     Route: 065
  7. ZOMETA [Concomitant]
  8. ALOXI [Concomitant]
     Route: 065
  9. DEXAMETHASONE SODIUM PHOSPHATE [Concomitant]
     Route: 065

REACTIONS (1)
  - Death [Fatal]
